FAERS Safety Report 4417174-9 (Version None)
Quarter: 2004Q3

REPORT INFORMATION
  Report Type: 
  Country: None (occurrence: None)
  Receive Date: 20040702
  Receipt Date: 20040514
  Transmission Date: 20050211
  Serious: No
  Sender: FDA-Public Use
  Company Number: US076583

PATIENT
  Sex: Male
  Weight: 68.1 kg

DRUGS (4)
  1. SENSIPAR [Suspect]
     Indication: HYPERPARATHYROIDISM SECONDARY
     Dosage: 30 MG, 1 IN 1 DAYS, PO
     Route: 048
     Dates: start: 20040503
  2. PARICALCITOL [Concomitant]
  3. SEVELAMER HCL [Concomitant]
  4. PHOSLO [Concomitant]

REACTIONS (2)
  - HYPERCALCAEMIA [None]
  - HYPERPHOSPHATAEMIA [None]
